FAERS Safety Report 7031739-X (Version None)
Quarter: 2010Q4

REPORT INFORMATION
  Report Type: 
  Country: None (occurrence: None)
  Receive Date: 20101007
  Receipt Date: 20100930
  Transmission Date: 20110411
  Serious: No
  Sender: FDA-Public Use
  Company Number: US-BIOGENIDEC-2010BI008409

PATIENT
  Age: 58 Year
  Sex: Female

DRUGS (2)
  1. TYSABRI [Suspect]
     Indication: MULTIPLE SCLEROSIS
     Route: 042
     Dates: start: 20081113, end: 20100501
  2. TYSABRI [Suspect]
     Route: 042
     Dates: start: 20100920

REACTIONS (3)
  - ASTHENIA [None]
  - DYSPNOEA [None]
  - FATIGUE [None]
